FAERS Safety Report 9245810 (Version 1)
Quarter: 2013Q2

REPORT INFORMATION
  Report Type: Spontaneous
  Country: BR (occurrence: BR)
  Receive Date: 20130422
  Receipt Date: 20130422
  Transmission Date: 20140414
  Serious: Yes (Hospitalization)
  Sender: FDA-Public Use
  Company Number: BR-NOVOPROD-375524

PATIENT
  Age: 60 Year
  Sex: Female
  Weight: 54 kg

DRUGS (6)
  1. NOVORAPID FLEXPEN [Suspect]
     Indication: TYPE 2 DIABETES MELLITUS
     Dosage: 6 TO 8 UNITS DAILY
     Route: 058
     Dates: start: 20110410
  2. LANTUS [Concomitant]
     Indication: TYPE 2 DIABETES MELLITUS
     Dosage: UNK
     Route: 058
  3. LANTUS [Concomitant]
     Dosage: 46 U, QD
     Route: 058
     Dates: start: 20110410
  4. MONOCORDIL [Concomitant]
     Indication: CARDIAC DISORDER
     Dosage: 3 TAB
     Route: 048
     Dates: start: 20020410
  5. SIMVASTATIN [Concomitant]
     Indication: BLOOD CHOLESTEROL
     Dosage: 1 TAB
     Route: 048
     Dates: start: 20020410
  6. SOMALGIN [Concomitant]
     Indication: CARDIAC DISORDER
     Dosage: 1 TAB
     Route: 048
     Dates: start: 20020410

REACTIONS (5)
  - Urinary tract infection [Recovered/Resolved]
  - Hypertension [Recovered/Resolved]
  - Hyperglycaemia [Recovered/Resolved]
  - Wrong technique in drug usage process [Unknown]
  - Diabetes mellitus inadequate control [Unknown]
